FAERS Safety Report 4407867-1 (Version None)
Quarter: 2004Q3

REPORT INFORMATION
  Report Type: 
  Country: None (occurrence: None)
  Receive Date: 20040726
  Receipt Date: 20040719
  Transmission Date: 20050211
  Serious: Yes (Hospitalization)
  Sender: FDA-Public Use
  Company Number: PHBS2004ES09687

PATIENT
  Age: 79 Year
  Sex: Male
  Weight: 80 kg

DRUGS (8)
  1. CARBAMAZEPINE [Suspect]
     Indication: NEUROPATHY
     Dosage: 200 MG/DAY
     Route: 048
  2. CARBAMAZEPINE [Suspect]
     Dosage: 400 MG/DAY
     Route: 048
  3. PAROXETINE HCL [Suspect]
     Indication: DEPRESSION
     Dosage: 20 MG/DAY
     Route: 065
  4. PREDNISOLONE [Concomitant]
     Dosage: 30 MG/DAY
     Route: 065
  5. METFORMIN HCL [Concomitant]
     Indication: DIABETES MELLITUS
  6. ENALAPRIL MALEATE [Concomitant]
     Indication: HYPERTENSION
  7. OMEPRAZOLE [Concomitant]
     Indication: GASTROOESOPHAGEAL REFLUX DISEASE
  8. GLICLAZIDE [Concomitant]
     Indication: DIABETES MELLITUS

REACTIONS (2)
  - DRUG INTERACTION [None]
  - HYPONATRAEMIA [None]
